FAERS Safety Report 4683839-7 (Version None)
Quarter: 2005Q2

REPORT INFORMATION
  Report Type: 
  Country: None (occurrence: None)
  Receive Date: 20050606
  Receipt Date: 20050606
  Transmission Date: 20051028
  Serious: Yes (Other)
  Sender: FDA-Public Use
  Company Number: None

PATIENT
  Age: 51 Year
  Sex: Female

DRUGS (1)
  1. CIPRO [Suspect]
     Indication: PREOPERATIVE CARE

REACTIONS (3)
  - HYPOTENSION [None]
  - INFUSION SITE REACTION [None]
  - URTICARIA [None]
